FAERS Safety Report 5743803-3 (Version None)
Quarter: 2008Q2

REPORT INFORMATION
  Report Type: 
  Country: None (occurrence: None)
  Receive Date: 20080519
  Receipt Date: 20080519
  Transmission Date: 20081010
  Serious: Yes (Other)
  Sender: FDA-Public Use
  Company Number: None

PATIENT
  Sex: Male

DRUGS (7)
  1. REVLIMID [Suspect]
     Indication: MULTIPLE MYELOMA
     Dosage: 25MG    DAILY     21D/28D         PO
     Route: 048
  2. DEXAMETHASONE TAB [Concomitant]
  3. ZOMETA [Concomitant]
  4. VICODIN [Concomitant]
  5. ATENOLOL [Concomitant]
  6. TRAZODONE HCL [Concomitant]
  7. INDOMETHACIN [Concomitant]

REACTIONS (1)
  - RASH PAPULAR [None]
